FAERS Safety Report 16289448 (Version 2)
Quarter: 2021Q4

REPORT INFORMATION
  Report Type: Spontaneous
  Country: ES (occurrence: ES)
  Receive Date: 20190509
  Receipt Date: 20211008
  Transmission Date: 20220303
  Serious: Yes (Other)
  Sender: FDA-Public Use
  Company Number: None

PATIENT
  Age: 47 Year
  Sex: Male

DRUGS (4)
  1. QUETIAPINE [Suspect]
     Active Substance: QUETIAPINE
     Indication: Skull fracture
     Dosage: 100 MILLIGRAM, 3 TIMES A DAY
     Route: 048
     Dates: start: 20180729, end: 20180814
  2. QUETIAPINE [Suspect]
     Active Substance: QUETIAPINE
     Dosage: 200 MILLIGRAM, FOUR TIMES/DAY
     Route: 048
     Dates: start: 20180815
  3. QUETIAPINE [Suspect]
     Active Substance: QUETIAPINE
     Dosage: 200 MILLIGRAM, 3 TIMES A DAY
     Route: 048
     Dates: start: 20180816
  4. RISPERDAL [Suspect]
     Active Substance: RISPERIDONE
     Indication: Skull fracture
     Dosage: 0,5 MG 0,5 ML, 8 PER HOUR
     Route: 048
     Dates: start: 20180822

REACTIONS (1)
  - Oculogyric crisis [Unknown]

NARRATIVE: CASE EVENT DATE: 20190415
